FAERS Safety Report 12191054 (Version 1)
Quarter: 2016Q1

REPORT INFORMATION
  Report Type: Spontaneous
  Country: US (occurrence: None)
  Receive Date: 20160317
  Receipt Date: 20160317
  Transmission Date: 20160526
  Serious: No
  Sender: FDA-Public Use
  Company Number: None

PATIENT
  Age: 58 Year
  Sex: Female
  Weight: 70.94 kg

DRUGS (1)
  1. ATORVASTATIN 80MG MYLAN [Suspect]
     Active Substance: ATORVASTATIN
     Indication: TYPE IIA HYPERLIPIDAEMIA
     Dates: start: 20130111, end: 20150111

REACTIONS (2)
  - Muscle spasms [None]
  - Myalgia [None]
